FAERS Safety Report 6305845-9 (Version None)
Quarter: 2009Q3

REPORT INFORMATION
  Report Type: 
  Country: None (occurrence: None)
  Receive Date: 20090812
  Receipt Date: 20090728
  Transmission Date: 20100115
  Serious: Yes (Death, Life-Threatening, Hospitalization)
  Sender: FDA-Public Use
  Company Number: DE-BRISTOL-MYERS SQUIBB COMPANY-14728349

PATIENT
  Age: 68 Year
  Sex: Male
  Weight: 88 kg

DRUGS (16)
  1. CETUXIMAB [Suspect]
     Indication: ADENOCARCINOMA
     Dosage: CETUXIMAB 400MG/M2
     Route: 042
     Dates: start: 20090723, end: 20090723
  2. CISPLATIN [Suspect]
     Indication: ADENOCARCINOMA
     Dosage: CISPLATIN 75MG/M2
     Route: 042
     Dates: start: 20090723, end: 20090723
  3. ALIMTA [Suspect]
     Indication: ADENOCARCINOMA
     Dosage: PEMETREXED DISODIUM - 500MG/M2
     Route: 042
     Dates: start: 20090723, end: 20090723
  4. SIMVAHEXAL [Concomitant]
     Route: 065
     Dates: start: 20090125
  5. LASIX [Concomitant]
     Route: 065
     Dates: start: 20090625
  6. RAMIPRIL [Concomitant]
     Route: 065
     Dates: start: 20090625
  7. CORDAREX [Concomitant]
     Route: 065
     Dates: start: 20090625
  8. OXYGEN [Concomitant]
     Route: 065
     Dates: start: 20090717
  9. FOLSAURE [Concomitant]
     Indication: PROPHYLAXIS
     Route: 065
     Dates: start: 20090706
  10. VITAMIN B-12 [Concomitant]
     Indication: PROPHYLAXIS
     Route: 065
     Dates: start: 20090717, end: 20090717
  11. EMEND [Concomitant]
     Indication: PROPHYLAXIS
     Route: 065
     Dates: start: 20090724, end: 20090725
  12. FORTECORTIN [Concomitant]
     Indication: PROPHYLAXIS
     Route: 065
     Dates: start: 20090724, end: 20090725
  13. CLEXANE [Concomitant]
     Indication: PROPHYLAXIS
     Route: 065
     Dates: start: 20090723
  14. SAB SIMPLEX [Concomitant]
     Indication: PROPHYLAXIS
     Route: 065
     Dates: start: 20090727
  15. ATROVENT [Concomitant]
     Indication: PROPHYLAXIS
     Route: 065
     Dates: start: 20090727
  16. SULTANOL [Concomitant]
     Route: 065
     Dates: start: 20090727

REACTIONS (3)
  - ACUTE PRERENAL FAILURE [None]
  - ILEUS [None]
  - PULMONARY EMBOLISM [None]
